FAERS Safety Report 8021391-9 (Version None)
Quarter: 2012Q1

REPORT INFORMATION
  Report Type: 
  Country: None (occurrence: None)
  Receive Date: 20120104
  Receipt Date: 20111230
  Transmission Date: 20120608
  Serious: Yes (Other)
  Sender: FDA-Public Use
  Company Number: FI-PFIZER INC-2012000071

PATIENT
  Age: 26 Year
  Sex: Female

DRUGS (1)
  1. SUTENT [Suspect]
     Indication: ENDOCRINE NEOPLASM MALIGNANT
     Dosage: 12.5 MG
     Dates: start: 20110401

REACTIONS (1)
  - MYOCARDIAL INFARCTION [None]
